FAERS Safety Report 22106921 (Version 1)
Quarter: 2023Q1

REPORT INFORMATION
  Report Type: Spontaneous
  Country: US (occurrence: US)
  Receive Date: 20230317
  Receipt Date: 20230317
  Transmission Date: 20230417
  Serious: Yes (Hospitalization, Other)
  Sender: FDA-Public Use
  Company Number: US-SANOFI-01529631

PATIENT
  Age: 65 Year
  Sex: Male

DRUGS (1)
  1. LANTUS SOLOSTAR [Suspect]
     Active Substance: INSULIN GLARGINE
     Indication: Type 2 diabetes mellitus
     Dosage: 40 U; BID
     Route: 065
     Dates: start: 202205

REACTIONS (4)
  - Myocardial infarction [Unknown]
  - Respiratory disorder [Unknown]
  - Vertigo [Unknown]
  - Inappropriate schedule of product administration [Unknown]
